FAERS Safety Report 11173730 (Version 1)
Quarter: 2015Q2

REPORT INFORMATION
  Report Type: Spontaneous
  Country: US (occurrence: US)
  Receive Date: 20150609
  Receipt Date: 20150609
  Transmission Date: 20150821
  Serious: No
  Sender: FDA-Public Use
  Company Number: US-DRREDDYS-USA/USA/14/0040687

PATIENT
  Sex: Female

DRUGS (2)
  1. MUCINEX ALLERGY [Suspect]
     Active Substance: FEXOFENADINE HYDROCHLORIDE
     Indication: SECRETION DISCHARGE
     Route: 048
     Dates: start: 20140527, end: 20140527
  2. LUMIN [Suspect]
     Active Substance: MIANSERIN HYDROCHLORIDE
     Indication: GLAUCOMA
     Route: 047

REACTIONS (2)
  - Drug ineffective [Unknown]
  - Product quality issue [Unknown]
